FAERS Safety Report 6146681-6 (Version None)
Quarter: 2009Q2

REPORT INFORMATION
  Report Type: 
  Country: None (occurrence: None)
  Receive Date: 20090407
  Receipt Date: 20090128
  Transmission Date: 20091009
  Serious: Yes (Other)
  Sender: FDA-Public Use
  Company Number: US-PFIZER INC-2007025352

PATIENT
  Sex: Female
  Weight: 61.2 kg

DRUGS (12)
  1. NEURONTIN [Suspect]
     Indication: NEURALGIA
     Dosage: 300 MG, 3X/DAY
     Dates: start: 19960101, end: 20061218
  2. NEURONTIN [Suspect]
     Indication: INTERVERTEBRAL DISC PROTRUSION
  3. PROCARDIA [Suspect]
     Indication: BLOOD PRESSURE
     Dosage: UNK
     Dates: start: 19960101
  4. LYRICA [Suspect]
     Indication: NERVE INJURY
  5. VYTORIN [Concomitant]
     Dosage: UNK
  6. PLAVIX [Concomitant]
  7. TOPROL-XL [Concomitant]
  8. ASPIRIN [Concomitant]
  9. QUININE [Concomitant]
  10. ALPRAZOLAM [Concomitant]
  11. FOSAMAX [Concomitant]
  12. VALSARTAN [Concomitant]

REACTIONS (14)
  - ALOPECIA [None]
  - ARTERIAL OCCLUSIVE DISEASE [None]
  - BACK INJURY [None]
  - BLOOD PRESSURE INCREASED [None]
  - DRUG EFFECT DECREASED [None]
  - DRUG INEFFECTIVE [None]
  - FEELING ABNORMAL [None]
  - FIBROMYALGIA [None]
  - GAIT DISTURBANCE [None]
  - HEADACHE [None]
  - MUSCLE FATIGUE [None]
  - NEURALGIA [None]
  - OSTEOPOROSIS [None]
  - PARAESTHESIA [None]
